FAERS Safety Report 8908093 (Version 1)
Quarter: 2012Q4

REPORT INFORMATION
  Report Type: 
  Country: FR (occurrence: FR)
  Receive Date: 20121114
  Receipt Date: 20121114
  Transmission Date: 20130627
  Serious: Yes (Hospitalization)
  Sender: FDA-Public Use
  Company Number: PHHY2012FR104252

PATIENT
  Age: 54 Year
  Sex: Female

DRUGS (4)
  1. ZOMETA [Suspect]
     Dosage: Every 3 weeks
     Route: 042
     Dates: start: 201006, end: 201111
  2. CLASTOBAN [Suspect]
     Dosage: UNK UKN, UNK
     Dates: start: 200812, end: 201010
  3. NAVELBINE [Concomitant]
  4. HERCEPTIN [Concomitant]

REACTIONS (4)
  - Osteonecrosis of jaw [Not Recovered/Not Resolved]
  - Abscess [Unknown]
  - Purulent discharge [Unknown]
  - Infection [Unknown]
